FAERS Safety Report 12255193 (Version 1)
Quarter: 2016Q2

REPORT INFORMATION
  Report Type: Spontaneous
  Country: US (occurrence: US)
  Receive Date: 20160412
  Receipt Date: 20160412
  Transmission Date: 20160815
  Serious: Yes (Disabling)
  Sender: FDA-Public Use
  Company Number: US-ROCHE-1737743

PATIENT
  Sex: Male

DRUGS (1)
  1. CELLCEPT [Suspect]
     Active Substance: MYCOPHENOLATE MOFETIL\MYCOPHENOLATE MOFETIL HYDROCHLORIDE
     Indication: RENAL TRANSPLANT
     Route: 065

REACTIONS (6)
  - Finger deformity [Not Recovered/Not Resolved]
  - Gouty tophus [Not Recovered/Not Resolved]
  - Blood creatinine increased [Recovering/Resolving]
  - Vomiting [Recovered/Resolved]
  - Gout [Unknown]
  - Food intolerance [Recovered/Resolved]
